FAERS Safety Report 12397925 (Version 1)
Quarter: 2016Q2

REPORT INFORMATION
  Report Type: Spontaneous
  Country: JP (occurrence: JP)
  Receive Date: 20160524
  Receipt Date: 20160524
  Transmission Date: 20160815
  Serious: Yes (Hospitalization, Other)
  Sender: FDA-Public Use
  Company Number: JP-WATSON-2016-10341

PATIENT
  Age: 55 Year
  Sex: Male
  Weight: 53 kg

DRUGS (1)
  1. DILTIAZEM (UNKNOWN) [Suspect]
     Active Substance: DILTIAZEM
     Indication: PRODUCT USED FOR UNKNOWN INDICATION
     Dosage: 6 G, SINGLE, 60 X 100MG TABLETS
     Route: 048

REACTIONS (4)
  - Dizziness [Unknown]
  - Overdose [Recovered/Resolved]
  - Nausea [Unknown]
  - Renal tubular necrosis [Recovered/Resolved]
